FAERS Safety Report 25643300 (Version 4)
Quarter: 2025Q3

REPORT INFORMATION
  Report Type: Other
  Country: EU (occurrence: EU)
  Receive Date: 20250805
  Receipt Date: 20250911
  Transmission Date: 20251020
  Serious: Yes (Other)
  Sender: Atnahs Healthcare
  Company Number: EU-ATNAHS-2025-PMNV-FR000210

PATIENT

DRUGS (18)
  1. DIAZEPAM [Suspect]
     Active Substance: DIAZEPAM
     Indication: Product used for unknown indication
     Route: 065
  2. COCAINE [Suspect]
     Active Substance: COCAINE
     Indication: Product used for unknown indication
     Route: 065
  3. COCAINE [Suspect]
     Active Substance: COCAINE
     Route: 048
  4. COCAINE [Suspect]
     Active Substance: COCAINE
     Route: 048
  5. PREGABALIN [Suspect]
     Active Substance: PREGABALIN
     Indication: Product used for unknown indication
     Route: 065
  6. PREGABALIN [Suspect]
     Active Substance: PREGABALIN
  7. PREGABALIN [Suspect]
     Active Substance: PREGABALIN
  8. TRAMADOL HYDROCHLORIDE [Suspect]
     Active Substance: TRAMADOL HYDROCHLORIDE
     Indication: Product used for unknown indication
     Route: 065
  9. CANNABIS SATIVA SUBSP. INDICA TOP [Suspect]
     Active Substance: CANNABIS SATIVA SUBSP. INDICA TOP
     Indication: Product used for unknown indication
     Route: 065
  10. CANNABIS SATIVA SUBSP. INDICA TOP [Suspect]
     Active Substance: CANNABIS SATIVA SUBSP. INDICA TOP
  11. CANNABIS SATIVA SUBSP. INDICA TOP [Suspect]
     Active Substance: CANNABIS SATIVA SUBSP. INDICA TOP
     Route: 065
  12. CLONAZEPAM [Suspect]
     Active Substance: CLONAZEPAM
     Indication: Product used for unknown indication
     Route: 065
  13. CLONAZEPAM [Suspect]
     Active Substance: CLONAZEPAM
  14. CLONAZEPAM [Suspect]
     Active Substance: CLONAZEPAM
  15. COCAINE [Suspect]
     Active Substance: COCAINE
     Indication: Product used for unknown indication
  16. OPIUM [Suspect]
     Active Substance: OPIUM
     Indication: Product used for unknown indication
     Route: 065
  17. OPIUM [Suspect]
     Active Substance: OPIUM
  18. OPIUM [Suspect]
     Active Substance: OPIUM

REACTIONS (3)
  - Somnolence [Recovered/Resolved]
  - Drug use disorder [Unknown]
  - Substance use disorder [Unknown]
